FAERS Safety Report 5798704-1 (Version None)
Quarter: 2008Q2

REPORT INFORMATION
  Report Type: 
  Country: None (occurrence: None)
  Receive Date: 20080630
  Receipt Date: 20080616
  Transmission Date: 20081010
  Serious: Yes (Disabling)
  Sender: FDA-Public Use
  Company Number: 2008S1010391

PATIENT
  Age: 57 Year

DRUGS (1)
  1. TERBINAFINE HYDROCHLORIDE [Suspect]
     Indication: ONYCHOMYCOSIS
     Dosage: 250 MG; ORAL
     Route: 048
     Dates: start: 20070910, end: 20080501

REACTIONS (1)
  - COLITIS MICROSCOPIC [None]
